FAERS Safety Report 4441742-1 (Version None)
Quarter: 2004Q3

REPORT INFORMATION
  Report Type: 
  Country: None (occurrence: None)
  Receive Date: 20040907
  Receipt Date: 20040826
  Transmission Date: 20050211
  Serious: Yes (Hospitalization)
  Sender: FDA-Public Use
  Company Number: US-JNJFOC-20040701811

PATIENT
  Sex: Female
  Weight: 83.46 kg

DRUGS (23)
  1. REMICADE [Suspect]
     Dosage: INTIATED IN INFLIXIMAB THERAPY ^4 YEARS AGO^
     Route: 042
  2. REMICADE [Suspect]
     Indication: RHEUMATOID ARTHRITIS
     Route: 042
  3. NITRO QUICK [Concomitant]
  4. MORFINE [Concomitant]
     Indication: RHEUMATOID ARTHRITIS
  5. IMURAN [Concomitant]
     Indication: RHEUMATOID ARTHRITIS
  6. PLAVIX [Concomitant]
  7. TOPROL-XL [Concomitant]
  8. ALTACE [Concomitant]
  9. ZOCOR [Concomitant]
  10. ASPIRIN [Concomitant]
  11. ADVAIR DISKUS 100/50 [Concomitant]
  12. ADVAIR DISKUS 100/50 [Concomitant]
  13. PREVACID [Concomitant]
  14. ELAVIL [Concomitant]
  15. FOSAMAX [Concomitant]
  16. LORCET-HD [Concomitant]
  17. PROSAM [Concomitant]
  18. LONOX [Concomitant]
  19. LONOX [Concomitant]
  20. RITALIN [Concomitant]
  21. TRILEPTIL [Concomitant]
  22. CALCIUM [Concomitant]
  23. DURAGESIC [Concomitant]

REACTIONS (2)
  - CORONARY ARTERY DISEASE [None]
  - DRUG INEFFECTIVE [None]
